FAERS Safety Report 20011082 (Version 1)
Quarter: 2021Q4

REPORT INFORMATION
  Report Type: Spontaneous
  Country: US (occurrence: US)
  Receive Date: 20211028
  Receipt Date: 20211028
  Transmission Date: 20220303
  Serious: Yes (Life-Threatening)
  Sender: FDA-Public Use
  Company Number: None

PATIENT
  Age: 27 Year
  Sex: Female

DRUGS (1)
  1. PARAGARD T 380A [Suspect]
     Active Substance: COPPER
     Indication: Contraception
     Dates: start: 20190226, end: 20210108

REACTIONS (3)
  - Pregnancy with contraceptive device [None]
  - Maternal exposure timing unspecified [None]
  - Maternal drugs affecting foetus [None]
